FAERS Safety Report 9450607 (Version 2)
Quarter: 2013Q3

REPORT INFORMATION
  Report Type: Spontaneous
  Country: AU (occurrence: AU)
  Receive Date: 20130809
  Receipt Date: 20130820
  Transmission Date: 20140515
  Serious: Yes (Hospitalization, Other)
  Sender: FDA-Public Use
  Company Number: AU-PFIZER INC-2013230688

PATIENT
  Age: 76 Year
  Sex: Female

DRUGS (11)
  1. ATORVASTATIN CALCIUM [Suspect]
     Dosage: UNK
  2. METHOTREXATE [Suspect]
     Dosage: UNK
  3. POTASSIUM CHLORIDE [Suspect]
     Dosage: UNK
  4. RAMIPRIL [Suspect]
     Dosage: UNK
  5. AMITRIPTYLINE HYDROCHLORIDE [Suspect]
     Dosage: UNK
     Dates: end: 2011
  6. PREDNISOLONE [Suspect]
  7. THYROXINE SODIUM [Suspect]
  8. ASPIRIN [Suspect]
     Dosage: UNK
  9. PANADOL OSTEO [Suspect]
  10. PLAQUENIL [Suspect]
     Dosage: UNK
     Dates: start: 2011
  11. FOLIC ACID [Concomitant]

REACTIONS (1)
  - Vestibular neuronitis [Unknown]
